FAERS Safety Report 10760640 (Version 1)
Quarter: 2015Q1

REPORT INFORMATION
  Report Type: Spontaneous
  Country: US (occurrence: None)
  Receive Date: 20150202
  Receipt Date: 20150202
  Transmission Date: 20150721
  Serious: Yes (Death, Other)
  Sender: FDA-Public Use
  Company Number: LH201500061

PATIENT
  Age: 33 Week

DRUGS (1)
  1. MAKENA [Suspect]
     Active Substance: HYDROXYPROGESTERONE CAPROATE
     Indication: EXPOSURE DURING PREGNANCY
     Dosage: 250 MG, ONCE WEEKLY?
     Dates: start: 20140903, end: 2015

REACTIONS (3)
  - Foetal hypokinesia [None]
  - Foetal exposure during pregnancy [None]
  - Foetal death [None]

NARRATIVE: CASE EVENT DATE: 20140107
